FAERS Safety Report 14714021 (Version 1)
Quarter: 2018Q2

REPORT INFORMATION
  Report Type: Report from Study
  Country: GR (occurrence: GR)
  Receive Date: 20180404
  Receipt Date: 20180404
  Transmission Date: 20180711
  Serious: Yes (Other)
  Sender: FDA-Public Use
  Company Number: GR-ROCHE-2101837

PATIENT
  Age: 82 Year
  Sex: Male

DRUGS (1)
  1. ESBRIET [Suspect]
     Active Substance: PIRFENIDONE
     Indication: IDIOPATHIC PULMONARY FIBROSIS
     Dosage: 3X3
     Route: 048
     Dates: start: 2016

REACTIONS (1)
  - Dermatitis [Recovered/Resolved]

NARRATIVE: CASE EVENT DATE: 2017
